FAERS Safety Report 25499574 (Version 1)
Quarter: 2025Q3

REPORT INFORMATION
  Report Type: Spontaneous
  Country: EU (occurrence: EU)
  Receive Date: 20250701
  Receipt Date: 20250701
  Transmission Date: 20251021
  Serious: Yes (Hospitalization)
  Sender: SANDOZ
  Company Number: None

PATIENT
  Age: 15 Year
  Sex: Male
  Weight: 82 kg

DRUGS (6)
  1. ADALIMUMAB [Suspect]
     Active Substance: ADALIMUMAB
     Indication: Colitis ulcerative
     Route: 065
     Dates: start: 202402, end: 20240626
  2. FOLIC ACID [Suspect]
     Active Substance: FOLIC ACID
     Indication: Colitis ulcerative
     Dosage: 5 MG, QW
     Route: 048
     Dates: start: 20240626
  3. INFLIXIMAB [Suspect]
     Active Substance: INFLIXIMAB
     Indication: Colitis ulcerative
     Route: 042
     Dates: start: 20240626
  4. METHOTREXATE [Suspect]
     Active Substance: METHOTREXATE
     Indication: Colitis ulcerative
     Dosage: 10 MG, QW
     Route: 048
     Dates: start: 20240626
  5. ASCORBIC ACID\FERROUS SULFATE [Suspect]
     Active Substance: ASCORBIC ACID\FERROUS SULFATE
     Indication: Colitis ulcerative
     Dosage: TIMOFEROL 50 MG, COMPRIM? ENROB?
     Route: 048
     Dates: start: 20240626
  6. HYDROXYZINE [Concomitant]
     Active Substance: HYDROXYZINE HYDROCHLORIDE
     Indication: Anxiety
     Dosage: 25 MG, QD
     Route: 048
     Dates: start: 20240809, end: 20240809

REACTIONS (4)
  - Suicide attempt [Recovered/Resolved]
  - Anxiety [Unknown]
  - Thymus disorder [Unknown]
  - Psychotic disorder [Unknown]

NARRATIVE: CASE EVENT DATE: 20240701
